FAERS Safety Report 6876330-0 (Version None)
Quarter: 2010Q3

REPORT INFORMATION
  Report Type: 
  Country: None (occurrence: None)
  Receive Date: 20100727
  Receipt Date: 20100712
  Transmission Date: 20110219
  Serious: Yes (Other)
  Sender: FDA-Public Use
  Company Number: US-PAR PHARMACEUTICAL, INC-2010SCPR001919

PATIENT

DRUGS (4)
  1. CHOLESTYRAMINE [Suspect]
     Indication: DIARRHOEA
     Dosage: HALF A SCOOP EVERY DAY
     Route: 048
     Dates: start: 20050701, end: 20100101
  2. CHOLESTYRAMINE [Suspect]
     Dosage: UNK
     Dates: start: 20100701
  3. PRILOSEC [Suspect]
     Indication: PRODUCT USED FOR UNKNOWN INDICATION
     Dosage: UNK
     Route: 065
  4. TESTOSTERONE [Concomitant]
     Indication: ANDROGEN DEFICIENCY
     Dosage: ONCE EVERY 2 WEEKS
     Route: 065
     Dates: start: 20100301

REACTIONS (2)
  - BLOOD TESTOSTERONE DECREASED [None]
  - URTICARIA [None]
